FAERS Safety Report 15882556 (Version 2)
Quarter: 2021Q2

REPORT INFORMATION
  Report Type: Spontaneous
  Country: FR (occurrence: FR)
  Receive Date: 20190129
  Receipt Date: 20210426
  Transmission Date: 20210716
  Serious: Yes (Hospitalization)
  Sender: FDA-Public Use
  Company Number: FR-TEVA-2019-FR-1003835

PATIENT
  Age: 71 Year
  Sex: Female

DRUGS (1)
  1. TAMOXIFENE BASE [Suspect]
     Active Substance: TAMOXIFEN
     Indication: NEOPLASM MALIGNANT
     Route: 065
     Dates: start: 20180507, end: 201812

REACTIONS (1)
  - Peripheral artery stenosis [Recovered/Resolved]

NARRATIVE: CASE EVENT DATE: 20181213
